FAERS Safety Report 4865750-1 (Version None)
Quarter: 2005Q4

REPORT INFORMATION
  Report Type: 
  Country: None (occurrence: None)
  Receive Date: 20051220
  Receipt Date: 20051206
  Transmission Date: 20060501
  Serious: Yes (Hospitalization)
  Sender: FDA-Public Use
  Company Number: 12871

PATIENT
  Age: 53 Year
  Sex: Male

DRUGS (7)
  1. PACLITAXEL [Suspect]
  2. CARBOPLATIN [Suspect]
  3. DMXAA [Suspect]
     Indication: NON-SMALL CELL LUNG CANCER
     Dosage: 1200 MG FREQ
     Dates: start: 20050812, end: 20051018
  4. MORPHINE [Concomitant]
  5. TORSEMIDE [Concomitant]
  6. ESOMEPRAZOLE [Concomitant]
  7. POTASSIUM CHLORIDE [Concomitant]

REACTIONS (5)
  - ASTHENIA [None]
  - FLUSHING [None]
  - MYALGIA [None]
  - NAUSEA [None]
  - SHOCK [None]
